FAERS Safety Report 8152463-6 (Version None)
Quarter: 2012Q1

REPORT INFORMATION
  Report Type: 
  Country: None (occurrence: None)
  Receive Date: 20120215
  Receipt Date: 20120207
  Transmission Date: 20120608
  Serious: Yes (Other)
  Sender: FDA-Public Use
  Company Number: TPA2009A00362

PATIENT
  Age: 77 Year
  Sex: Male
  Weight: 110.2241 kg

DRUGS (8)
  1. ATENOLOL [Concomitant]
  2. GLIMEPIRIDE [Concomitant]
  3. SPIRONOLACTONE [Concomitant]
  4. SIMVASTATIN [Concomitant]
  5. ACTOS [Suspect]
     Indication: TYPE 2 DIABETES MELLITUS
     Dosage: 15 MG, 1 IN 1 D, PER ORAL, 15 MG, 1 IN 1 D, PER ORAL
     Route: 048
     Dates: start: 20070701, end: 20081101
  6. ACTOS [Suspect]
     Indication: TYPE 2 DIABETES MELLITUS
     Dosage: 15 MG, 1 IN 1 D, PER ORAL, 15 MG, 1 IN 1 D, PER ORAL
     Route: 048
     Dates: start: 20061101, end: 20070201
  7. FUROSEMIDE [Concomitant]
  8. ASPIRIN [Concomitant]

REACTIONS (2)
  - HAEMATURIA [None]
  - BLADDER TRANSITIONAL CELL CARCINOMA STAGE 0 [None]
